FAERS Safety Report 5187314-5 (Version None)
Quarter: 2006Q4

REPORT INFORMATION
  Report Type: 
  Country: None (occurrence: None)
  Receive Date: 20061213
  Receipt Date: 20061202
  Transmission Date: 20070319
  Serious: Yes (Other)
  Sender: FDA-Public Use
  Company Number: 15272

PATIENT
  Age: 55 Year
  Sex: Male

DRUGS (11)
  1. HYDROMORPHONE HCL [Suspect]
     Indication: PAIN
     Dosage: 4 MG TOTAL IV
     Route: 042
  2. HYDROMORPHONE HCL [Suspect]
     Indication: PAIN
     Dosage: 6 MG TOTAL IV
     Route: 042
  3. DISOPYRAMIDE [Concomitant]
  4. ATENOLOL [Concomitant]
  5. ENALAPRIL MALEATE [Concomitant]
  6. WARFARIN SODIUM [Concomitant]
  7. EXTENDED-RELEASE VENLAFAXINE [Concomitant]
  8. GABAPENTIN [Concomitant]
  9. SIMVASTATIN [Concomitant]
  10. FLUTICASONE/SALMETEROL [Concomitant]
  11. ONDANSETRON [Concomitant]

REACTIONS (1)
  - MYOCLONUS [None]
